FAERS Safety Report 7487658-8 (Version None)
Quarter: 2011Q2

REPORT INFORMATION
  Report Type: 
  Country: None (occurrence: None)
  Receive Date: 20110518
  Receipt Date: 20091122
  Transmission Date: 20111010
  Serious: Yes (Death, Other)
  Sender: FDA-Public Use
  Company Number: US-BAYER-200940247NA

PATIENT
  Age: 17 Year
  Sex: Male
  Weight: 44 kg

DRUGS (42)
  1. MICRO-K [Concomitant]
     Indication: PRODUCT USED FOR UNKNOWN INDICATION
     Dosage: 20 MEQ, BID
     Route: 048
  2. LASIX [Concomitant]
     Dosage: 20 MG, UNK
     Route: 042
     Dates: start: 19960726, end: 19960726
  3. AMICAR [Concomitant]
     Indication: PRODUCT USED FOR UNKNOWN INDICATION
     Dosage: 4 G, UNK
     Route: 042
     Dates: start: 19960727, end: 19960727
  4. SOLU-MEDROL [Concomitant]
     Indication: PRODUCT USED FOR UNKNOWN INDICATION
     Dosage: 100 MG, UNK
     Route: 042
     Dates: start: 19960727, end: 19960727
  5. POTASSIUM [Concomitant]
     Indication: PRODUCT USED FOR UNKNOWN INDICATION
     Dosage: 10 MEQ, UNK
     Route: 042
     Dates: start: 19960726, end: 19960726
  6. TRASYLOL [Suspect]
     Indication: HEART TRANSPLANT
     Dosage: 200 ML LOADING DOSE
     Route: 040
     Dates: start: 19960726, end: 19960726
  7. TRASYLOL [Suspect]
     Dosage: 2 ML, Q1HR VIA CARDIOPULMONARY BYPASS PUMP
     Dates: start: 19960726, end: 19960727
  8. LASIX [Concomitant]
     Indication: PRODUCT USED FOR UNKNOWN INDICATION
     Dosage: 20 MG, BID
     Route: 048
  9. ALDACTAZIDE [Concomitant]
     Indication: PRODUCT USED FOR UNKNOWN INDICATION
     Dosage: 25 MG, BID
     Route: 048
  10. ISUPREL [Concomitant]
     Indication: PRODUCT USED FOR UNKNOWN INDICATION
     Dosage: 20-40 MG/KG/MINUTE
     Route: 042
     Dates: start: 19960726, end: 19960726
  11. SODIUM BICARBONATE [Concomitant]
     Indication: PRODUCT USED FOR UNKNOWN INDICATION
     Dosage: 5 MEQ, UNK
     Route: 042
     Dates: start: 19960726, end: 19960726
  12. CRYOPRECIPITATES [Concomitant]
     Indication: PRODUCT USED FOR UNKNOWN INDICATION
     Dosage: 20 U, UNK
     Route: 042
     Dates: start: 19960726, end: 19960727
  13. NITROGLYCERIN [Concomitant]
     Indication: PRODUCT USED FOR UNKNOWN INDICATION
     Dosage: UNK
     Route: 042
     Dates: start: 19960726, end: 19960727
  14. ROCURONIUM BROMIDE [Concomitant]
     Indication: PRODUCT USED FOR UNKNOWN INDICATION
     Dosage: 70 MG, UNK
     Route: 042
     Dates: start: 19960726, end: 19960727
  15. ERYTHROMYCIN [Concomitant]
     Indication: PRODUCT USED FOR UNKNOWN INDICATION
     Dosage: 500 MG, UNK
     Route: 042
     Dates: start: 19960726, end: 19960726
  16. GENTAMICIN [Concomitant]
     Indication: PRODUCT USED FOR UNKNOWN INDICATION
     Dosage: 100 MG, UNK
     Route: 042
     Dates: start: 19960726, end: 19960727
  17. FENTANYL [Concomitant]
     Indication: PRODUCT USED FOR UNKNOWN INDICATION
     Dosage: 3500 MG, UNK
     Route: 042
     Dates: start: 19960726, end: 19960727
  18. TRASYLOL [Suspect]
     Indication: HEART AND LUNG TRANSPLANT
     Dosage: 50 CC/HOUR
     Route: 042
     Dates: start: 19960726, end: 19960726
  19. CAPTOPRIL [Concomitant]
     Indication: PRODUCT USED FOR UNKNOWN INDICATION
     Dosage: 6.25 MG, TID
     Route: 048
  20. ISOFLURANE [Concomitant]
     Indication: PRODUCT USED FOR UNKNOWN INDICATION
     Dosage: .2-.5% INHALATION
     Dates: start: 19960726, end: 19960727
  21. PANCURONIUM BROMIDE [Concomitant]
     Indication: PRODUCT USED FOR UNKNOWN INDICATION
     Dosage: 28 MG, UNK
     Route: 042
     Dates: start: 19960726, end: 19960727
  22. DOPAMINE HCL [Concomitant]
     Indication: PRODUCT USED FOR UNKNOWN INDICATION
     Dosage: 1-7 MG/KG/MINUTE
     Route: 042
     Dates: start: 19960726, end: 19960801
  23. RED BLOOD CELLS [Concomitant]
     Indication: PRODUCT USED FOR UNKNOWN INDICATION
     Dosage: 15 U, UNK
     Route: 042
     Dates: start: 19960726, end: 19960727
  24. VANCOMYCIN [Concomitant]
     Indication: PRODUCT USED FOR UNKNOWN INDICATION
     Dosage: 500 MG, UNK
     Route: 042
     Dates: start: 19960727, end: 19960727
  25. DIGOXIN [Concomitant]
     Indication: PRODUCT USED FOR UNKNOWN INDICATION
     Dosage: 0.65 MG, 1/2 TABLET, QD
     Route: 048
  26. LEVOPHED [Concomitant]
     Indication: PRODUCT USED FOR UNKNOWN INDICATION
     Dosage: UNK
     Route: 042
     Dates: start: 19960726, end: 19960801
  27. CEFAZOLIN [Concomitant]
     Dosage: 1 G, UNK
     Route: 042
     Dates: start: 19960726, end: 19960726
  28. MANNITOL [Concomitant]
     Indication: PRODUCT USED FOR UNKNOWN INDICATION
     Dosage: 50 G, UNK
     Dates: start: 19960726, end: 19960727
  29. MAGNESIUM SULFATE [Concomitant]
     Indication: PRODUCT USED FOR UNKNOWN INDICATION
     Dosage: 2 G, UNK
     Dates: start: 19960726, end: 19960727
  30. AMIODARONE HCL [Concomitant]
     Indication: PRODUCT USED FOR UNKNOWN INDICATION
     Dosage: 200 MG, QD
     Route: 048
  31. MIDAZOLAM HCL [Concomitant]
     Indication: PRODUCT USED FOR UNKNOWN INDICATION
     Dosage: 20 MG, UNK
     Route: 042
     Dates: start: 19960726, end: 19960727
  32. CEFAZOLIN [Concomitant]
     Indication: PRODUCT USED FOR UNKNOWN INDICATION
     Dosage: 1 G, UNK
     Route: 042
     Dates: start: 19960727, end: 19960727
  33. EPINEPHRINE [Concomitant]
     Indication: PRODUCT USED FOR UNKNOWN INDICATION
     Dosage: 50 MG/KG/MINUTE; MULTIPLE DOSES
     Route: 042
     Dates: start: 19960726, end: 19960801
  34. IMURAN [Concomitant]
     Indication: PRODUCT USED FOR UNKNOWN INDICATION
     Dosage: 100 - 200 MG
     Route: 042
     Dates: start: 19960726, end: 19960726
  35. COUMADIN [Concomitant]
     Indication: PRODUCT USED FOR UNKNOWN INDICATION
     Dosage: 2.5 MG, 1/2 TABLET QD
     Route: 048
  36. HEPARIN [Concomitant]
     Indication: PRODUCT USED FOR UNKNOWN INDICATION
     Dosage: 10,000 UNITS; 13,000 UNITS; 15,000 UNITS
     Route: 042
     Dates: start: 19960726, end: 19960727
  37. CALCIUM CHLORIDE [Concomitant]
     Indication: PRODUCT USED FOR UNKNOWN INDICATION
     Dosage: 800
     Route: 042
     Dates: start: 19960726, end: 19960726
  38. PLASMA [Concomitant]
     Indication: PRODUCT USED FOR UNKNOWN INDICATION
     Dosage: 9 U, UNK
     Route: 042
     Dates: start: 19960726, end: 19960727
  39. PLATELETS [Concomitant]
     Indication: PRODUCT USED FOR UNKNOWN INDICATION
     Dosage: 24 U, UNK
     Route: 042
     Dates: start: 19960726, end: 19960727
  40. ALBUMIN (HUMAN) [Concomitant]
     Indication: PRODUCT USED FOR UNKNOWN INDICATION
     Dosage: 500 MG, UNK
     Route: 042
     Dates: start: 19960726, end: 19960727
  41. PROTAMINE SULFATE [Concomitant]
     Indication: PRODUCT USED FOR UNKNOWN INDICATION
     Dosage: 200 MG, UNK
     Dates: start: 19960726, end: 19960727
  42. LIDOCAINE [Concomitant]
     Indication: PRODUCT USED FOR UNKNOWN INDICATION
     Dosage: 825 MG, UNK
     Dates: start: 19960726, end: 19960727

REACTIONS (13)
  - UNEVALUABLE EVENT [None]
  - ANHEDONIA [None]
  - INJURY [None]
  - FEAR [None]
  - RENAL FAILURE [None]
  - STRESS [None]
  - PAIN [None]
  - MULTI-ORGAN FAILURE [None]
  - EMOTIONAL DISTRESS [None]
  - DEATH [None]
  - RENAL IMPAIRMENT [None]
  - RENAL INJURY [None]
  - ANXIETY [None]
